FAERS Safety Report 13503498 (Version 1)
Quarter: 2017Q2

REPORT INFORMATION
  Report Type: Spontaneous
  Country: US (occurrence: US)
  Receive Date: 20170502
  Receipt Date: 20170502
  Transmission Date: 20170830
  Serious: Yes (Hospitalization)
  Sender: FDA-Public Use
  Company Number: US-LPDUSPRD-20170478

PATIENT
  Age: 29 Year
  Sex: Female
  Weight: 70.3 kg

DRUGS (4)
  1. EPINEPHRINE INJECTION, USP (1071-25) [Suspect]
     Active Substance: EPINEPHRINE
     Dosage: 1:200000L 7 MG/KG
     Route: 058
  2. LIDOCAINE HCL [Suspect]
     Active Substance: LIDOCAINE HYDROCHLORIDE
     Dosage: 50 ML
     Route: 058
  3. VERSED [Concomitant]
     Active Substance: MIDAZOLAM HYDROCHLORIDE
     Dosage: 2 MG
     Route: 042
  4. PROPROFOL [Suspect]
     Active Substance: PROPOFOL
     Dosage: 340 MG
     Route: 042

REACTIONS (5)
  - Chills [Recovered/Resolved]
  - Retching [Recovered/Resolved]
  - Sinus tachycardia [Recovered/Resolved]
  - Seizure [Recovered/Resolved]
  - Grimacing [Recovered/Resolved]
